FAERS Safety Report 12715578 (Version 1)
Quarter: 2016Q3

REPORT INFORMATION
  Report Type: Spontaneous
  Country: US (occurrence: US)
  Receive Date: 20160906
  Receipt Date: 20160906
  Transmission Date: 20161109
  Serious: Yes (Hospitalization)
  Sender: FDA-Public Use
  Company Number: US-PFIZER INC-2016402828

PATIENT
  Age: 62 Year
  Sex: Female
  Weight: 52.61 kg

DRUGS (1)
  1. IBRANCE [Suspect]
     Active Substance: PALBOCICLIB
     Indication: BREAST CANCER
     Dosage: 125 MG, CYCLIC (1D-21D Q 28 D)
     Route: 048
     Dates: start: 20160808

REACTIONS (1)
  - Red blood cell abnormality [Unknown]

NARRATIVE: CASE EVENT DATE: 20160822
